FAERS Safety Report 19770877 (Version 1)
Quarter: 2021Q3

REPORT INFORMATION
  Report Type: Report from Study
  Country: DE (occurrence: DE)
  Receive Date: 20210901
  Receipt Date: 20210901
  Transmission Date: 20211014
  Serious: Yes (Hospitalization)
  Sender: FDA-Public Use
  Company Number: DE-ROCHE-2898888

PATIENT
  Age: 51 Year
  Sex: Female
  Weight: 74 kg

DRUGS (6)
  1. ATEZOLIZUMAB. [Suspect]
     Active Substance: ATEZOLIZUMAB
     Indication: CERVIX CARCINOMA RECURRENT
     Dosage: MOST RECENT DOSE ON 04/AUG/2021
     Route: 042
     Dates: start: 20210317
  2. CARBOPLATIN. [Suspect]
     Active Substance: CARBOPLATIN
     Indication: CERVIX CARCINOMA RECURRENT
     Dosage: MOST RECENT DOSE ON 09/JUN/2021
     Route: 042
     Dates: start: 20210317
  3. PACLITAXEL. [Suspect]
     Active Substance: PACLITAXEL
     Indication: CERVIX CARCINOMA RECURRENT
     Dosage: MOST RECENT DOSE ON 09/JUN/2021
     Route: 042
     Dates: start: 20210317
  4. BEVACIZUMAB. [Suspect]
     Active Substance: BEVACIZUMAB
     Indication: CERVIX CARCINOMA RECURRENT
     Dosage: MOST RECENT DOSE ON 04/AUG/2021
     Route: 042
     Dates: start: 20210317
  5. XARELTO [Concomitant]
     Active Substance: RIVAROXABAN
     Dates: start: 20210818
  6. NITROFURANTOIN. [Concomitant]
     Active Substance: NITROFURANTOIN
     Dates: start: 20210820

REACTIONS (2)
  - Nausea [Unknown]
  - Vomiting [Unknown]

NARRATIVE: CASE EVENT DATE: 20210823
